FAERS Safety Report 5452288-6 (Version None)
Quarter: 2007Q3

REPORT INFORMATION
  Report Type: 
  Country: None (occurrence: None)
  Receive Date: 20070813
  Receipt Date: 20070117
  Transmission Date: 20080115
  Serious: No
  Sender: FDA-Public Use
  Company Number: 20073477

PATIENT
  Sex: Male

DRUGS (4)
  1. LIORESAL [Suspect]
     Indication: MUSCLE SPASTICITY
     Dosage: DAILY, INTRATHECAL
     Route: 037
  2. DILAUDID [Concomitant]
  3. CLONIDINE [Concomitant]
  4. BUPIVACAINE [Concomitant]

REACTIONS (2)
  - NAUSEA [None]
  - VOMITING [None]
